FAERS Safety Report 13384189 (Version 1)
Quarter: 2017Q1

REPORT INFORMATION
  Report Type: Spontaneous
  Country: US (occurrence: US)
  Receive Date: 20170329
  Receipt Date: 20170329
  Transmission Date: 20170429
  Serious: No
  Sender: FDA-Public Use
  Company Number: US-MYLANLABS-2016M1030676

PATIENT
  Age: 49 Year
  Sex: Female
  Weight: 62.59 kg

DRUGS (3)
  1. EMSAM [Suspect]
     Active Substance: SELEGILINE
     Indication: POST-TRAUMATIC STRESS DISORDER
     Dosage: 6MG/QD
     Route: 062
     Dates: start: 20160616, end: 20160718
  2. EMSAM [Suspect]
     Active Substance: SELEGILINE
     Indication: DEPRESSION
  3. EMSAM [Suspect]
     Active Substance: SELEGILINE
     Indication: OBSESSIVE-COMPULSIVE DISORDER

REACTIONS (4)
  - Application site pain [Recovered/Resolved]
  - Application site irritation [Recovering/Resolving]
  - Application site pruritus [Recovered/Resolved]
  - Application site discharge [Recovered/Resolved]

NARRATIVE: CASE EVENT DATE: 201606
